FAERS Safety Report 9234236 (Version 2)
Quarter: 2013Q2

REPORT INFORMATION
  Report Type: Report from Study
  Country: US (occurrence: US)
  Receive Date: 20130416
  Receipt Date: 20130422
  Transmission Date: 20140414
  Serious: Yes (Death)
  Sender: FDA-Public Use
  Company Number: PHEH2013US008442

PATIENT
  Sex: Female

DRUGS (21)
  1. GLEEVEC [Suspect]
     Indication: CHRONIC MYELOID LEUKAEMIA
     Dosage: 600 MG, DAILY
     Route: 048
     Dates: start: 20020531
  2. DOXYCYCLINE [Concomitant]
     Dosage: UNK UKN, UNK
  3. VITAMIN B [Concomitant]
     Dosage: UNK UKN, UNK
  4. FERROUS SULFATE [Concomitant]
     Dosage: UNK UKN, UNK
  5. CENTRUM [Concomitant]
     Dosage: UNK UKN, UNK
  6. FOLIC ACID [Concomitant]
     Dosage: UNK UKN, UNK
  7. NITROGLYCERIN [Concomitant]
     Dosage: UNK UKN, UNK
  8. ZOFRAN [Concomitant]
     Dosage: UNK UKN, UNK
  9. LISINOPRIL [Concomitant]
     Dosage: UNK UKN, UNK
  10. FUROSEMIDE [Concomitant]
     Dosage: UNK UKN, UNK
  11. DIGOXIN [Concomitant]
     Dosage: UNK UKN, UNK
  12. COREG [Concomitant]
     Dosage: UNK UKN, UNK
  13. ASPIRIN [Concomitant]
     Dosage: UNK UKN, UNK
  14. PRILOSEC [Concomitant]
     Dosage: UNK UKN, UNK
  15. PLAVIX [Concomitant]
     Dosage: UNK UKN, UNK
  16. NIASPAN [Concomitant]
     Dosage: UNK UKN, UNK
  17. NEURONTIN [Concomitant]
     Dosage: UNK UKN, UNK
  18. LAXAPRONT [Concomitant]
     Dosage: UNK UKN, UNK
  19. KLOR-CON [Concomitant]
     Dosage: UNK UKN, UNK
  20. ATIVAN [Concomitant]
     Dosage: UNK UKN, UNK
  21. LIPITOR [Concomitant]
     Dosage: UNK UKN, UNK

REACTIONS (2)
  - Lung adenocarcinoma stage IV [Fatal]
  - Second primary malignancy [Fatal]
